FAERS Safety Report 10008606 (Version 2)
Quarter: 2014Q2

REPORT INFORMATION
  Report Type: Spontaneous
  Country: DE (occurrence: DE)
  Receive Date: 20140313
  Receipt Date: 20140402
  Transmission Date: 20141212
  Serious: Yes (Hospitalization)
  Sender: FDA-Public Use
  Company Number: ALCN2014DE001563

PATIENT
  Age: 72 Year
  Sex: Female

DRUGS (4)
  1. AZOPT [Suspect]
     Dosage: 1 DF, BID
     Route: 047
     Dates: start: 2013
  2. DUOTRAV POLYQUAD [Suspect]
     Dosage: 1 DF, QD
     Route: 047
     Dates: start: 2013
  3. NEVIBOLOL DCI [Concomitant]
     Indication: BLOOD PRESSURE INCREASED
  4. THYRONAJOD [Concomitant]
     Indication: HYPOTHYROIDISM

REACTIONS (2)
  - Diplopia [Recovering/Resolving]
  - Adverse event [Unknown]
